FAERS Safety Report 20807300 (Version 1)
Quarter: 2022Q2

REPORT INFORMATION
  Report Type: Spontaneous
  Country: US (occurrence: US)
  Receive Date: 20220510
  Receipt Date: 20220510
  Transmission Date: 20220721
  Serious: Yes (Hospitalization, Other)
  Sender: FDA-Public Use
  Company Number: None

PATIENT
  Age: 17 Year
  Sex: Female

DRUGS (14)
  1. ETOPOSIDE PHOSPHATE [Suspect]
     Active Substance: ETOPOSIDE PHOSPHATE
     Indication: Hodgkin^s disease
     Dosage: ABVE-PC (DOXORUBICIN HYDROCHLORIDE, BLEOMYCIN, VINCRISTINE SULFATE, ETOPOSIDE PHOSPHATE, PREDNISO...
     Route: 065
  2. DOXORUBICIN HYDROCHLORIDE [Suspect]
     Active Substance: DOXORUBICIN HYDROCHLORIDE
     Indication: Hodgkin^s disease
     Dosage: ABVE-PC (DOXORUBICIN HYDROCHLORIDE, BLEOMYCIN, VINCRISTINE SULFATE, ETOPOSIDE PHOSPHATE, PREDNISO...
     Route: 065
  3. BLEOMYCIN [Suspect]
     Active Substance: BLEOMYCIN SULFATE
     Indication: Hodgkin^s disease
     Dosage: ABVE-PC (DOXORUBICIN HYDROCHLORIDE, BLEOMYCIN, VINCRISTINE SULFATE, ETOPOSIDE PHOSPHATE, PREDNISO...
     Route: 065
  4. VINCRISTINE [Suspect]
     Active Substance: VINCRISTINE
     Indication: Hodgkin^s disease
     Dosage: ABVE-PC (DOXORUBICIN HYDROCHLORIDE, BLEOMYCIN, VINCRISTINE SULFATE, ETOPOSIDE PHOSPHATE, PREDNISO...
     Route: 065
  5. PREDNISONE [Suspect]
     Active Substance: PREDNISONE
     Indication: Hodgkin^s disease
     Dosage: ABVE-PC (DOXORUBICIN HYDROCHLORIDE, BLEOMYCIN, VINCRISTINE SULFATE, ETOPOSIDE PHOSPHATE, PREDNISO...
     Route: 065
  6. CYCLOPHOSPHAMIDE [Suspect]
     Active Substance: CYCLOPHOSPHAMIDE
     Indication: Hodgkin^s disease
     Dosage: ABVE-PC (DOXORUBICIN HYDROCHLORIDE, BLEOMYCIN, VINCRISTINE SULFATE, ETOPOSIDE PHOSPHATE, PREDNISO...
     Route: 065
  7. MEASLES-MUMPS-RUBELLA VIRUS VACCINE [Suspect]
     Active Substance: MEASLES-MUMPS-RUBELLA VIRUS VACCINE
     Indication: Immunisation
     Route: 065
     Dates: start: 2019
  8. PENICILLIN G [Concomitant]
     Active Substance: PENICILLIN G
     Route: 042
  9. AMOXICILLIN [Concomitant]
     Active Substance: AMOXICILLIN
     Indication: Prophylaxis
     Route: 065
  10. ACYCLOVIR [Concomitant]
     Active Substance: ACYCLOVIR
     Indication: Prophylaxis
     Route: 042
  11. AMPHOTERICIN B [Concomitant]
     Active Substance: AMPHOTERICIN B
     Route: 042
  12. POSACONAZOLE [Concomitant]
     Active Substance: POSACONAZOLE
     Route: 042
  13. POSACONAZOLE [Concomitant]
     Active Substance: POSACONAZOLE
     Route: 048
  14. VORICONAZOLE [Concomitant]
     Active Substance: VORICONAZOLE
     Route: 048

REACTIONS (6)
  - Febrile neutropenia [Not Recovered/Not Resolved]
  - Bacteraemia [Not Recovered/Not Resolved]
  - Abdominal pain [Not Recovered/Not Resolved]
  - Varicella zoster virus infection [Not Recovered/Not Resolved]
  - Pharyngeal erythema [Not Recovered/Not Resolved]
  - Respiratory failure [Not Recovered/Not Resolved]
